APPROVED DRUG PRODUCT: PERIDEX
Active Ingredient: CHLORHEXIDINE GLUCONATE
Strength: 0.12%
Dosage Form/Route: SOLUTION;DENTAL
Application: N019028 | Product #001 | TE Code: AT
Applicant: 3M CO
Approved: Aug 13, 1986 | RLD: Yes | RS: Yes | Type: RX